FAERS Safety Report 7012594-0 (Version None)
Quarter: 2010Q3

REPORT INFORMATION
  Report Type: 
  Country: None (occurrence: None)
  Receive Date: 20100924
  Receipt Date: 20100920
  Transmission Date: 20110219
  Serious: Yes (Life-Threatening)
  Sender: FDA-Public Use
  Company Number: AU-ASTRAZENECA-2010SE44039

PATIENT
  Age: 57 Year
  Sex: Male

DRUGS (4)
  1. CRESTOR [Suspect]
     Route: 048
  2. LIPITOR [Suspect]
  3. ASPIRIN [Suspect]
  4. MICARDIS [Suspect]
     Indication: ESSENTIAL HYPERTENSION
     Dates: end: 20100615

REACTIONS (1)
  - LUNG ADENOCARCINOMA [None]
